FAERS Safety Report 5272148-3 (Version None)
Quarter: 2007Q1

REPORT INFORMATION
  Report Type: 
  Country: None (occurrence: None)
  Receive Date: 20070322
  Receipt Date: 20070313
  Transmission Date: 20070707
  Serious: Yes (Other)
  Sender: FDA-Public Use
  Company Number: 2007UW04850

PATIENT
  Age: 75 Year
  Sex: Female

DRUGS (8)
  1. ARIMIDEX [Suspect]
     Indication: BREAST CANCER
     Route: 048
  2. DEMADEX [Concomitant]
  3. LEVASIN [Concomitant]
  4. MECLIZINE [Concomitant]
  5. SYNTHROID [Concomitant]
  6. NASONEX [Concomitant]
     Route: 045
  7. CALCIUM [Concomitant]
     Indication: SUPPLEMENTATION THERAPY
  8. MULTI-VITAMIN [Concomitant]

REACTIONS (12)
  - ARTHRALGIA [None]
  - ASTHENIA [None]
  - COUGH [None]
  - DEPRESSION [None]
  - GOUT [None]
  - HOT FLUSH [None]
  - NAUSEA [None]
  - OEDEMA PERIPHERAL [None]
  - PHARYNGOLARYNGEAL PAIN [None]
  - RETINAL HAEMORRHAGE [None]
  - THROMBOSIS [None]
  - VISION BLURRED [None]
